FAERS Safety Report 12894580 (Version 1)
Quarter: 2016Q4

REPORT INFORMATION
  Report Type: Report from Study
  Country: None (occurrence: BR)
  Receive Date: 20161028
  Receipt Date: 20161028
  Transmission Date: 20170207
  Serious: Yes (Other)
  Sender: FDA-Public Use
  Company Number: BR-ABBVIE-16P-020-1766071-00

PATIENT
  Sex: Female
  Weight: 75 kg

DRUGS (4)
  1. TECTA [Concomitant]
     Active Substance: PANTOPRAZOLE MAGNESIUM
     Indication: GASTRIC DISORDER
     Dosage: 1 TABLET AFTER FASTING
  2. ARADOIS [Concomitant]
     Active Substance: LOSARTAN POTASSIUM
     Indication: BLOOD PRESSURE MEASUREMENT
     Dosage: DAILY DOSE: 2 TABLETS; 1 TABLET MORNING/1 TABLET AFTERNOON
     Dates: start: 2006
  3. SYNTHROID [Suspect]
     Active Substance: LEVOTHYROXINE SODIUM
     Indication: AUTOIMMUNE THYROIDITIS
     Dosage: DAILY DOSE: 1 TABLET; IN THE MORNING AFTER FASTING
     Route: 048
     Dates: start: 2006
  4. TECTA [Concomitant]
     Active Substance: PANTOPRAZOLE MAGNESIUM
     Indication: PROPHYLAXIS

REACTIONS (8)
  - Blood calcium increased [Not Recovered/Not Resolved]
  - Thyroid mass [Not Recovered/Not Resolved]
  - Breast cancer [Unknown]
  - Ligament rupture [Unknown]
  - Arthritis [Unknown]
  - Inflammation [Unknown]
  - Nephrolithiasis [Unknown]
  - Hepatic steatosis [Not Recovered/Not Resolved]

NARRATIVE: CASE EVENT DATE: 2012
